FAERS Safety Report 25440269 (Version 1)
Quarter: 2025Q2

REPORT INFORMATION
  Report Type: Spontaneous
  Country: TW (occurrence: TW)
  Receive Date: 20250616
  Receipt Date: 20250616
  Transmission Date: 20250716
  Serious: Yes (Life-Threatening)
  Sender: MYLAN
  Company Number: TW-MYLANLABS-2025M1050106

PATIENT
  Age: 71 Year
  Sex: Female

DRUGS (28)
  1. CELEBREX [Suspect]
     Active Substance: CELECOXIB
     Indication: Pain
     Dosage: 200 MILLIGRAM, QD
     Dates: start: 20250604
  2. CELEBREX [Suspect]
     Active Substance: CELECOXIB
     Dosage: 200 MILLIGRAM, QD
     Route: 048
     Dates: start: 20250604
  3. CELEBREX [Suspect]
     Active Substance: CELECOXIB
     Dosage: 200 MILLIGRAM, QD
     Route: 048
     Dates: start: 20250604
  4. CELEBREX [Suspect]
     Active Substance: CELECOXIB
     Dosage: 200 MILLIGRAM, QD
     Dates: start: 20250604
  5. HALOPERIDOL [Suspect]
     Active Substance: HALOPERIDOL
     Indication: Product used for unknown indication
     Route: 065
  6. HALOPERIDOL [Suspect]
     Active Substance: HALOPERIDOL
  7. HALOPERIDOL [Suspect]
     Active Substance: HALOPERIDOL
  8. HALOPERIDOL [Suspect]
     Active Substance: HALOPERIDOL
     Route: 065
  9. HALOPERIDOL [Suspect]
     Active Substance: HALOPERIDOL
     Dosage: 10 MILLIGRAM, QID
     Route: 065
  10. HALOPERIDOL [Suspect]
     Active Substance: HALOPERIDOL
     Dosage: 10 MILLIGRAM, QID
  11. HALOPERIDOL [Suspect]
     Active Substance: HALOPERIDOL
     Dosage: 10 MILLIGRAM, QID
  12. HALOPERIDOL [Suspect]
     Active Substance: HALOPERIDOL
     Dosage: 10 MILLIGRAM, QID
     Route: 065
  13. MEPHENOXALONE [Suspect]
     Active Substance: MEPHENOXALONE
     Indication: Product used for unknown indication
     Dosage: 200 MILLIGRAM, TID
  14. MEPHENOXALONE [Suspect]
     Active Substance: MEPHENOXALONE
     Dosage: 200 MILLIGRAM, TID
     Route: 065
  15. MEPHENOXALONE [Suspect]
     Active Substance: MEPHENOXALONE
     Dosage: 200 MILLIGRAM, TID
     Route: 065
  16. MEPHENOXALONE [Suspect]
     Active Substance: MEPHENOXALONE
     Dosage: 200 MILLIGRAM, TID
  17. ESTAZOLAM [Suspect]
     Active Substance: ESTAZOLAM
     Indication: Product used for unknown indication
     Dosage: 2 MILLIGRAM, QD
  18. ESTAZOLAM [Suspect]
     Active Substance: ESTAZOLAM
     Dosage: 2 MILLIGRAM, QD
     Route: 065
  19. ESTAZOLAM [Suspect]
     Active Substance: ESTAZOLAM
     Dosage: 2 MILLIGRAM, QD
     Route: 065
  20. ESTAZOLAM [Suspect]
     Active Substance: ESTAZOLAM
     Dosage: 2 MILLIGRAM, QD
  21. FLUNARIZINE HYDROCHLORIDE [Suspect]
     Active Substance: FLUNARIZINE HYDROCHLORIDE
     Indication: Product used for unknown indication
  22. FLUNARIZINE HYDROCHLORIDE [Suspect]
     Active Substance: FLUNARIZINE HYDROCHLORIDE
     Route: 065
  23. FLUNARIZINE HYDROCHLORIDE [Suspect]
     Active Substance: FLUNARIZINE HYDROCHLORIDE
     Route: 065
  24. FLUNARIZINE HYDROCHLORIDE [Suspect]
     Active Substance: FLUNARIZINE HYDROCHLORIDE
  25. MIRAPEX [Suspect]
     Active Substance: PRAMIPEXOLE DIHYDROCHLORIDE
     Indication: Product used for unknown indication
  26. MIRAPEX [Suspect]
     Active Substance: PRAMIPEXOLE DIHYDROCHLORIDE
     Route: 065
  27. MIRAPEX [Suspect]
     Active Substance: PRAMIPEXOLE DIHYDROCHLORIDE
     Route: 065
  28. MIRAPEX [Suspect]
     Active Substance: PRAMIPEXOLE DIHYDROCHLORIDE

REACTIONS (1)
  - Anaphylactic shock [Recovered/Resolved]

NARRATIVE: CASE EVENT DATE: 20250604
